FAERS Safety Report 21004057 (Version 1)
Quarter: 2022Q2

REPORT INFORMATION
  Report Type: Spontaneous
  Country: US (occurrence: None)
  Receive Date: 20220624
  Receipt Date: 20220624
  Transmission Date: 20220721
  Serious: Yes (Death)
  Sender: FDA-Public Use
  Company Number: None

PATIENT
  Age: 74 Year
  Sex: Female
  Weight: 51.75 kg

DRUGS (1)
  1. IBANDRONATE SODIUM [Suspect]
     Active Substance: IBANDRONATE SODIUM
     Indication: Osteoporosis
     Dosage: OTHER FREQUENCY : ONCE A MONTH;?
     Route: 048
     Dates: start: 20201207, end: 20220101

REACTIONS (2)
  - Acute myeloid leukaemia [None]
  - Adverse drug reaction [None]

NARRATIVE: CASE EVENT DATE: 20220117
